FAERS Safety Report 19155616 (Version 2)
Quarter: 2022Q1

REPORT INFORMATION
  Report Type: Spontaneous
  Country: US (occurrence: US)
  Receive Date: 20210419
  Receipt Date: 20220322
  Transmission Date: 20220423
  Serious: Yes (Other)
  Sender: FDA-Public Use
  Company Number: US-GLAXOSMITHKLINE-US2021GSK087823

PATIENT
  Sex: Male

DRUGS (25)
  1. ZANTAC [Suspect]
     Active Substance: RANITIDINE HYDROCHLORIDE
     Indication: Gastric ulcer
     Dosage: UNKNOWN AT THIS TIME, QD
     Route: 065
     Dates: start: 201105, end: 201305
  2. ZANTAC [Suspect]
     Active Substance: RANITIDINE HYDROCHLORIDE
     Indication: Erosive oesophagitis
     Dosage: UNKNOWN AT THIS TIME, WE
     Route: 065
     Dates: start: 201105, end: 201305
  3. ZANTAC [Suspect]
     Active Substance: RANITIDINE HYDROCHLORIDE
     Dosage: UNKNOWN AT THIS TIME, THEN AS NEEDED
     Route: 065
     Dates: start: 201105, end: 201305
  4. ZANTAC [Suspect]
     Active Substance: RANITIDINE HYDROCHLORIDE
     Indication: Gastric ulcer
     Dosage: UNKNOWN AT THIS TIME, QD
     Route: 065
     Dates: start: 201105, end: 201305
  5. ZANTAC [Suspect]
     Active Substance: RANITIDINE HYDROCHLORIDE
     Indication: Erosive oesophagitis
     Dosage: UNKNOWN AT THIS TIME, WE
     Route: 065
     Dates: start: 201105, end: 201305
  6. ZANTAC [Suspect]
     Active Substance: RANITIDINE HYDROCHLORIDE
     Dosage: UNKNOWN AT THIS TIME, THEN AS NEEDED
     Route: 065
     Dates: start: 201105, end: 201305
  7. ZANTAC [Suspect]
     Active Substance: RANITIDINE HYDROCHLORIDE
     Indication: Gastric ulcer
     Dosage: UNKNOWN AT THIS TIME, QD
     Route: 065
     Dates: start: 201105, end: 201305
  8. ZANTAC [Suspect]
     Active Substance: RANITIDINE HYDROCHLORIDE
     Indication: Erosive oesophagitis
     Dosage: UNKNOWN AT THIS TIME, WE
     Route: 065
     Dates: start: 201105, end: 201305
  9. ZANTAC [Suspect]
     Active Substance: RANITIDINE HYDROCHLORIDE
     Dosage: UNKNOWN AT THIS TIME, THEN AS NEEDED
     Route: 065
     Dates: start: 201105, end: 201305
  10. RANITIDINE [Suspect]
     Active Substance: RANITIDINE
     Indication: Gastric ulcer
     Dosage: UNKNOWN AT THIS TIME, QD
     Route: 065
     Dates: start: 201105, end: 201305
  11. RANITIDINE [Suspect]
     Active Substance: RANITIDINE
     Indication: Erosive oesophagitis
     Dosage: UNKNOWN AT THIS TIME, WE
     Route: 065
     Dates: start: 201105, end: 201305
  12. RANITIDINE [Suspect]
     Active Substance: RANITIDINE
     Dosage: UNKNOWN AT THIS TIME, THEN AS NEEDED
     Route: 065
     Dates: start: 201105, end: 201305
  13. ZANTAC [Suspect]
     Active Substance: RANITIDINE HYDROCHLORIDE
     Indication: Gastric ulcer
     Dosage: UNKNOWN AT THIS TIME, QD
     Route: 065
     Dates: start: 201105, end: 201107
  14. ZANTAC [Suspect]
     Active Substance: RANITIDINE HYDROCHLORIDE
     Indication: Erosive oesophagitis
     Dosage: UNKNOWN AT THIS TIME, QD
     Route: 065
     Dates: start: 201105, end: 201305
  15. ZANTAC [Suspect]
     Active Substance: RANITIDINE HYDROCHLORIDE
     Dosage: UNKNOWN AT THIS TIME, WE
     Route: 065
     Dates: start: 201105, end: 201305
  16. ZANTAC [Suspect]
     Active Substance: RANITIDINE HYDROCHLORIDE
     Dosage: UNKNOWN AT THIS TIME, THEN S NEEDED
     Route: 065
     Dates: start: 201105, end: 201305
  17. RANITIDINE [Suspect]
     Active Substance: RANITIDINE
     Indication: Gastric ulcer
     Dosage: UNKNOWN AT THIS TIME, OCCASIONAL
     Route: 065
     Dates: start: 201105, end: 201305
  18. RANITIDINE [Suspect]
     Active Substance: RANITIDINE
     Indication: Erosive oesophagitis
  19. RANITIDINE [Suspect]
     Active Substance: RANITIDINE
     Indication: Gastric ulcer
     Dosage: UNKNOWN AT THIS TIME, OCCASIONAL
     Route: 065
     Dates: start: 201105, end: 201305
  20. RANITIDINE [Suspect]
     Active Substance: RANITIDINE
     Indication: Erosive oesophagitis
  21. RANITIDINE [Suspect]
     Active Substance: RANITIDINE
     Indication: Gastric ulcer
     Dosage: UNKNOWN AT THIS TIME, OCCASIONAL
     Route: 065
     Dates: start: 201105, end: 201305
  22. RANITIDINE [Suspect]
     Active Substance: RANITIDINE
     Indication: Erosive oesophagitis
  23. RANITIDINE HYDROCHLORIDE [Suspect]
     Active Substance: RANITIDINE HYDROCHLORIDE
     Indication: Gastric ulcer
     Dosage: UNKNOWN AT THIS TIME, QD
     Route: 065
     Dates: start: 201105, end: 201305
  24. RANITIDINE HYDROCHLORIDE [Suspect]
     Active Substance: RANITIDINE HYDROCHLORIDE
     Indication: Erosive oesophagitis
     Dosage: UNKNOWN AT THIS TIME, WE
     Route: 065
     Dates: start: 201105, end: 201305
  25. RANITIDINE HYDROCHLORIDE [Suspect]
     Active Substance: RANITIDINE HYDROCHLORIDE
     Dosage: UNKNOWN AT THIS TIME, THEN S NEEDED
     Route: 065
     Dates: start: 201105, end: 201305

REACTIONS (1)
  - Prostate cancer [Unknown]
